FAERS Safety Report 20532005 (Version 1)
Quarter: 2022Q1

REPORT INFORMATION
  Report Type: Report from Study
  Country: US (occurrence: US)
  Receive Date: 20220301
  Receipt Date: 20220301
  Transmission Date: 20220423
  Serious: Yes (Hospitalization)
  Sender: FDA-Public Use
  Company Number: US-AMRYT PHARMACEUTICALS DAC-AEGR004860

PATIENT
  Age: 23 Year
  Sex: Female
  Weight: 68.385 kg

DRUGS (7)
  1. METRELEPTIN [Suspect]
     Active Substance: METRELEPTIN
     Indication: Congenital generalised lipodystrophy
     Dosage: 4.4 MG, (0.88ML), QD
     Route: 058
     Dates: start: 201412, end: 20200314
  2. METRELEPTIN [Suspect]
     Active Substance: METRELEPTIN
     Dosage: 5 MG, QD
     Route: 058
     Dates: start: 20191125
  3. METRELEPTIN [Suspect]
     Active Substance: METRELEPTIN
     Dosage: 4.4 MG, (0.88ML), QD
     Route: 058
     Dates: start: 20200317
  4. METRELEPTIN [Suspect]
     Active Substance: METRELEPTIN
     Dosage: 5 MG, QD
     Route: 058
  5. METFORMIN HYDROCHLORIDE [Concomitant]
     Active Substance: METFORMIN HYDROCHLORIDE
     Indication: Insulin resistance
     Dosage: 500 MG, QD
     Route: 048
     Dates: start: 20170605
  6. FENOFIBRATE [Concomitant]
     Active Substance: FENOFIBRATE
     Indication: Hypertriglyceridaemia
     Dosage: 145 MG, QD
     Route: 048
     Dates: start: 20191126
  7. BACTERIOSTATIC WATER [Concomitant]
     Active Substance: WATER
     Indication: Product used for unknown indication

REACTIONS (8)
  - Adnexal torsion [Recovered/Resolved]
  - Microcytic anaemia [Recovered/Resolved]
  - Seizure [Recovered/Resolved]
  - Heavy menstrual bleeding [Not Recovered/Not Resolved]
  - Iron deficiency [Not Recovered/Not Resolved]
  - Arthralgia [Not Recovered/Not Resolved]
  - Weight decreased [Unknown]
  - Product dose omission issue [Unknown]

NARRATIVE: CASE EVENT DATE: 20190201
